FAERS Safety Report 7946833-6 (Version None)
Quarter: 2011Q4

REPORT INFORMATION
  Report Type: 
  Country: None (occurrence: None)
  Receive Date: 20111129
  Receipt Date: 20111123
  Transmission Date: 20120403
  Serious: Yes (Disabling)
  Sender: FDA-Public Use
  Company Number: US-AMGEN-KDC427393

PATIENT
  Age: 95 Year
  Sex: Male
  Weight: 73 kg

DRUGS (5)
  1. DENOSUMAB [Suspect]
     Indication: PROSTATE CANCER
     Dosage: UNK UNK, UNK
     Route: 058
     Dates: start: 20060921, end: 20091116
  2. SULFAMETHOXAZOLE [Concomitant]
  3. CALCIUM [Concomitant]
     Dosage: UNK UNK, QD
  4. CITALOPRAM [Concomitant]
  5. GLYBURIDE [Concomitant]
     Dosage: 5 MG, QD

REACTIONS (2)
  - BONE DISORDER [None]
  - PAIN IN JAW [None]
